FAERS Safety Report 21419868 (Version 1)
Quarter: 2022Q4

REPORT INFORMATION
  Report Type: Spontaneous
  Country: US (occurrence: None)
  Receive Date: 20221006
  Receipt Date: 20221006
  Transmission Date: 20230113
  Serious: Yes (Hospitalization)
  Sender: FDA-Public Use
  Company Number: None

PATIENT
  Sex: Female
  Weight: 64.8 kg

DRUGS (2)
  1. GEMCITABINE HYDROCHLORIDE [Suspect]
     Active Substance: GEMCITABINE HYDROCHLORIDE
     Dates: end: 20220920
  2. PACLITAXEL [Suspect]
     Active Substance: PACLITAXEL
     Dates: end: 20220920

REACTIONS (2)
  - Fatigue [None]
  - Pyrexia [None]

NARRATIVE: CASE EVENT DATE: 20220922
